FAERS Safety Report 5292066-4 (Version None)
Quarter: 2007Q2

REPORT INFORMATION
  Report Type: 
  Country: None (occurrence: None)
  Receive Date: 20070403
  Receipt Date: 20070326
  Transmission Date: 20071010
  Serious: Yes (Other)
  Sender: FDA-Public Use
  Company Number: 2007RR-05037

PATIENT
  Sex: Male

DRUGS (2)
  1. SIMVASTATIN [Suspect]
     Indication: HYPERCHOLESTEROLAEMIA
     Dosage: SEE IMAGE
     Route: 048
  2. CITALOPRAM HYDROBROMIDE [Concomitant]

REACTIONS (5)
  - ANGIOEDEMA [None]
  - COORDINATION ABNORMAL [None]
  - EYE SWELLING [None]
  - HEADACHE [None]
  - MALAISE [None]
